FAERS Safety Report 6721522-4 (Version None)
Quarter: 2010Q2

REPORT INFORMATION
  Report Type: 
  Country: None (occurrence: None)
  Receive Date: 20100510
  Receipt Date: 20100428
  Transmission Date: 20101027
  Serious: Yes (Other)
  Sender: FDA-Public Use
  Company Number: DSJ-2010-07009

PATIENT
  Age: 59 Year
  Sex: Male

DRUGS (8)
  1. BENICAR [Suspect]
     Indication: HYPERTENSION
     Dosage: 40 MG, (1 IN 1 D), PER ORAL
     Route: 048
     Dates: start: 20100420
  2. PROPRANOLOL [Concomitant]
  3. GLICLAZIDE (GLICLAZIDE) [Concomitant]
  4. VILDAGLIPTIN (VILDAGLIPTIN) [Concomitant]
  5. SIMVASTATIN [Concomitant]
  6. CIPROFIBRATE (CIPROFIBRATE) [Concomitant]
  7. FUROSEMIDE [Concomitant]
  8. ASPIRIN [Concomitant]

REACTIONS (2)
  - AZOTAEMIA [None]
  - HYPERURICAEMIA [None]
